FAERS Safety Report 6093314-3 (Version None)
Quarter: 2009Q1

REPORT INFORMATION
  Report Type: 
  Country: None (occurrence: None)
  Receive Date: 20090224
  Receipt Date: 20090224
  Transmission Date: 20090719
  Serious: Yes (Disabling, Other)
  Sender: FDA-Public Use
  Company Number: None

PATIENT
  Age: 19 Year
  Sex: Female
  Weight: 72.5755 kg

DRUGS (5)
  1. AROMASIN [Suspect]
     Indication: BREAST CANCER
     Dosage: 25MG 1/DAY 047 ORAL OVER 1 YEAR
     Route: 048
  2. SYNTHROID [Concomitant]
  3. BYSTOLIC [Concomitant]
  4. DIOVAN [Concomitant]
  5. FUROSEMIDE [Concomitant]

REACTIONS (2)
  - MACULAR DEGENERATION [None]
  - VISUAL IMPAIRMENT [None]
